FAERS Safety Report 4377627-9 (Version None)
Quarter: 2004Q2

REPORT INFORMATION
  Report Type: 
  Country: None (occurrence: None)
  Receive Date: 20040601
  Receipt Date: 20040310
  Transmission Date: 20050107
  Serious: No
  Sender: FDA-Public Use
  Company Number: WAES 0401USA01592

PATIENT
  Age: 64 Year
  Sex: Female
  Weight: 74.8435 kg

DRUGS (1)
  1. ZETIA [Suspect]
     Indication: LIPIDS INCREASED
     Dosage: 10 MG DAILY; PO
     Route: 048
     Dates: start: 20030401, end: 20030801

REACTIONS (3)
  - ASTHENIA [None]
  - MYALGIA [None]
  - MYOPATHY [None]
